FAERS Safety Report 19728930 (Version 1)
Quarter: 2021Q3

REPORT INFORMATION
  Report Type: Not Available
  Country: AD (occurrence: None)
  Receive Date: 20210820
  Receipt Date: 20210820
  Transmission Date: 20211014
  Serious: No
  Sender: FDA-Public Use
  Company Number: US-AKORN-170625

PATIENT
  Age: 39 Year
  Sex: Male

DRUGS (1)
  1. MYORISAN [Suspect]
     Active Substance: ISOTRETINOIN

REACTIONS (4)
  - Lip dry [Unknown]
  - Skin fissures [Unknown]
  - Nasal dryness [Unknown]
  - Nasal discomfort [Unknown]
